FAERS Safety Report 22369303 (Version 2)
Quarter: 2023Q2

REPORT INFORMATION
  Report Type: Spontaneous
  Country: US (occurrence: US)
  Receive Date: 20230526
  Receipt Date: 20230605
  Transmission Date: 20230722
  Serious: Yes (Other)
  Sender: FDA-Public Use
  Company Number: US-PIRAMAL CRITICAL CARE LIMITED-2023-PEL-000310

PATIENT

DRUGS (1)
  1. GABLOFEN [Suspect]
     Active Substance: BACLOFEN
     Indication: Product used for unknown indication
     Dosage: 600 MCG/DAY
     Route: 037

REACTIONS (5)
  - Device related infection [Recovered/Resolved]
  - Meningitis [Not Recovered/Not Resolved]
  - Incision site erythema [Not Recovered/Not Resolved]
  - Incisional drainage [Not Recovered/Not Resolved]
  - Pyrexia [Not Recovered/Not Resolved]
